FAERS Safety Report 9917428 (Version 2)
Quarter: 2014Q1

REPORT INFORMATION
  Report Type: Spontaneous
  Country: US (occurrence: US)
  Receive Date: 20140221
  Receipt Date: 20140317
  Transmission Date: 20141002
  Serious: No
  Sender: FDA-Public Use
  Company Number: US-PFIZER INC-2014050588

PATIENT
  Age: 75 Year
  Sex: Male
  Weight: 90.7 kg

DRUGS (6)
  1. GABAPENTIN [Suspect]
     Indication: NEUROPATHY PERIPHERAL
     Dosage: UNK, 3X/DAY
     Dates: start: 2013
  2. OXYCODONE HYDROCHLORIDE [Suspect]
     Dosage: 2 MG, UNK
  3. SIMVASTATIN [Concomitant]
     Indication: BLOOD CHOLESTEROL ABNORMAL
     Dosage: 20 MG, UNK
  4. TRAMADOL HYDROCHLORIDE [Concomitant]
     Indication: URINARY INCONTINENCE
     Dosage: UNK
  5. CITALOPRAM [Concomitant]
     Indication: DEPRESSION
     Dosage: UNK
  6. OXYBUTYNIN CHLORIDE [Concomitant]
     Indication: PROSTATIC DISORDER
     Dosage: UNK

REACTIONS (2)
  - Drug ineffective [Unknown]
  - Pain in extremity [Unknown]
